FAERS Safety Report 18292520 (Version 1)
Quarter: 2020Q3

REPORT INFORMATION
  Report Type: Spontaneous
  Country: SE (occurrence: SE)
  Receive Date: 20200922
  Receipt Date: 20200922
  Transmission Date: 20201103
  Serious: Yes (Other)
  Sender: FDA-Public Use
  Company Number: SE-ASTELLAS-2020US032203

PATIENT
  Age: 92 Year
  Sex: Female

DRUGS (5)
  1. QUININE [Suspect]
     Active Substance: QUININE
     Indication: MUSCLE SPASMS
     Route: 065
  2. METOPROLOL SANDOZ [METOPROLOL SUCCINATE] [Suspect]
     Active Substance: METOPROLOL SUCCINATE
     Indication: PRODUCT USED FOR UNKNOWN INDICATION
     Route: 065
  3. OVESTERIN [Suspect]
     Active Substance: ESTRIOL
     Indication: DISCHARGE
     Dosage: UNK, UNK, UNKNOWN FREQ. (2 MONTHS)
     Route: 065
  4. ESTROGEN [Suspect]
     Active Substance: ESTROGENS
     Indication: PRODUCT USED FOR UNKNOWN INDICATION
     Route: 065
  5. BETMIGA [Suspect]
     Active Substance: MIRABEGRON
     Indication: DISCHARGE
     Dosage: 25 MG, TWICE DAILY (25 MG, BID)
     Route: 065

REACTIONS (4)
  - Breast cancer female [Recovered/Resolved]
  - Skin discolouration [Not Recovered/Not Resolved]
  - Memory impairment [Not Recovered/Not Resolved]
  - Product use in unapproved indication [Unknown]

NARRATIVE: CASE EVENT DATE: 201910
